FAERS Safety Report 10188987 (Version 1)
Quarter: 2014Q2

REPORT INFORMATION
  Report Type: Spontaneous
  Country: US (occurrence: None)
  Receive Date: 20140521
  Receipt Date: 20140521
  Transmission Date: 20141212
  Serious: Yes (Life-Threatening, Disabling)
  Sender: FDA-Public Use
  Company Number: None

PATIENT
  Age: 47 Year
  Sex: Female
  Weight: 80.74 kg

DRUGS (6)
  1. AMBIEN [Suspect]
     Indication: INSOMNIA
     Dosage: 1 5MG AT NIGHT
     Route: 048
     Dates: start: 20140430, end: 20140430
  2. LAMICTAL [Concomitant]
  3. PROZAC [Concomitant]
  4. KLONOPIN [Concomitant]
  5. VYVANSE [Concomitant]
  6. MULTIVITAMIN CALCIUM SUPPLEMENT [Concomitant]

REACTIONS (3)
  - Somnambulism [None]
  - Hallucination [None]
  - Somnambulism [None]
